FAERS Safety Report 15318435 (Version 1)
Quarter: 2018Q3

REPORT INFORMATION
  Report Type: Spontaneous
  Country: US (occurrence: US)
  Receive Date: 20180817
  Receipt Date: 20180817
  Transmission Date: 20181010
  Serious: No
  Sender: FDA-Public Use
  Company Number: None

PATIENT
  Age: 72 Year
  Sex: Male

DRUGS (13)
  1. DUPIXENT [Suspect]
     Active Substance: DUPILUMAB
     Indication: DERMATITIS ATOPIC
     Route: 058
     Dates: start: 20171101, end: 20180817
  2. ADVAIR DISKUS 100?50 [Concomitant]
  3. ESOMEPRAZOLE 40 MG [Concomitant]
     Active Substance: ESOMEPRAZOLE
  4. NABUMETONE 500 MG [Concomitant]
     Active Substance: NABUMETONE
  5. SERTRALINE 50 MG [Concomitant]
     Active Substance: SERTRALINE HYDROCHLORIDE
  6. UROCIT?K 10 MEQ [Concomitant]
  7. ASPIRIN 81 MG [Concomitant]
     Active Substance: ASPIRIN
  8. DUPIXENT [Suspect]
     Active Substance: DUPILUMAB
     Indication: ECZEMA
     Route: 058
     Dates: start: 20171101, end: 20180817
  9. MONTELUKAST 10 MG [Concomitant]
     Active Substance: MONTELUKAST SODIUM
  10. ATORVASTATIN 40 MG [Concomitant]
     Active Substance: ATORVASTATIN
  11. LISINOPRIL 20 MG [Concomitant]
     Active Substance: LISINOPRIL
  12. PROAIR HFA [Concomitant]
     Active Substance: ALBUTEROL SULFATE
  13. TAMSULOSIN 0.4 MG [Concomitant]
     Active Substance: TAMSULOSIN

REACTIONS (4)
  - Rash macular [None]
  - Rash erythematous [None]
  - Photosensitivity reaction [None]
  - Heavy exposure to ultraviolet light [None]

NARRATIVE: CASE EVENT DATE: 20180717
